FAERS Safety Report 8222468-5 (Version None)
Quarter: 2012Q1

REPORT INFORMATION
  Report Type: 
  Country: None (occurrence: None)
  Receive Date: 20120320
  Receipt Date: 20120305
  Transmission Date: 20120608
  Serious: Yes (Disabling, Other)
  Sender: FDA-Public Use
  Company Number: PHHY2012JP020432

PATIENT
  Age: 58 Year
  Sex: Male

DRUGS (2)
  1. METHOTREXATE [Concomitant]
     Indication: STEM CELL TRANSPLANT
  2. CYCLOSPORINE [Suspect]
     Indication: STEM CELL TRANSPLANT

REACTIONS (8)
  - MENINGITIS [None]
  - SUBARACHNOID HAEMORRHAGE [None]
  - ACUTE GRAFT VERSUS HOST DISEASE [None]
  - HAEMORRHAGIC INFARCTION [None]
  - ENGRAFTMENT SYNDROME [None]
  - BACILLUS INFECTION [None]
  - BACTERIAL SEPSIS [None]
  - ENCEPHALITIS [None]
